FAERS Safety Report 4339912-6 (Version None)
Quarter: 2004Q2

REPORT INFORMATION
  Report Type: 
  Country: None (occurrence: None)
  Receive Date: 20040414
  Receipt Date: 20040414
  Transmission Date: 20050107
  Serious: Yes (Life-Threatening)
  Sender: FDA-Public Use
  Company Number: None

PATIENT
  Age: 30 Year
  Sex: Female
  Weight: 62.5 kg

DRUGS (1)
  1. LEVLITE [Suspect]
     Indication: OVARIAN CYST
     Dosage: 1 TAB QD
     Dates: start: 20031201, end: 20040301

REACTIONS (4)
  - CEREBROVASCULAR ACCIDENT [None]
  - DIPLOPIA [None]
  - HEMIPARESIS [None]
  - RESPIRATORY FAILURE [None]
